FAERS Safety Report 6740781-5 (Version None)
Quarter: 2010Q2

REPORT INFORMATION
  Report Type: 
  Country: None (occurrence: None)
  Receive Date: 20100525
  Receipt Date: 20100525
  Transmission Date: 20101027
  Serious: No
  Sender: FDA-Public Use
  Company Number: None

PATIENT
  Sex: Female

DRUGS (2)
  1. BOTOX [Suspect]
     Indication: SKIN WRINKLING
     Dosage: 1 VIAL TWICE
     Dates: start: 20100204
  2. BOTOX [Suspect]
     Indication: SKIN WRINKLING
     Dosage: 1 VIAL TWICE
     Dates: start: 20100214

REACTIONS (4)
  - BALANCE DISORDER [None]
  - DIPLOPIA [None]
  - EMOTIONAL DISORDER [None]
  - IVTH NERVE PARESIS [None]
